FAERS Safety Report 5889188-3 (Version None)
Quarter: 2008Q3

REPORT INFORMATION
  Report Type: 
  Country: None (occurrence: None)
  Receive Date: 20080919
  Receipt Date: 20080909
  Transmission Date: 20090109
  Serious: Yes (Hospitalization)
  Sender: FDA-Public Use
  Company Number: PHHO2008FR09865

PATIENT
  Sex: Male
  Weight: 96 kg

DRUGS (3)
  1. ERL 080A ERL+TAB [Suspect]
     Indication: RENAL TRANSPLANT
     Dosage: 1440 MG, DAILY
     Route: 048
     Dates: start: 20071114, end: 20080423
  2. NEORAL [Suspect]
     Indication: RENAL TRANSPLANT
     Dosage: 125 MG, BID
     Route: 048
     Dates: start: 20080223, end: 20080423
  3. CORTICOSTEROIDS [Suspect]
     Indication: RENAL TRANSPLANT

REACTIONS (7)
  - BLOOD CREATININE INCREASED [None]
  - COMPLICATIONS OF TRANSPLANTED KIDNEY [None]
  - DISEASE PROGRESSION [None]
  - GLOMERULAR VASCULAR DISORDER [None]
  - KIDNEY FIBROSIS [None]
  - RENAL TUBULAR ATROPHY [None]
  - URETERIC STENOSIS [None]
